FAERS Safety Report 19077865 (Version 1)
Quarter: 2021Q1

REPORT INFORMATION
  Report Type: Spontaneous
  Country: US (occurrence: US)
  Receive Date: 20210330
  Receipt Date: 20210330
  Transmission Date: 20210420
  Serious: Yes (Hospitalization)
  Sender: FDA-Public Use
  Company Number: None

PATIENT
  Age: 66 Year
  Sex: Female

DRUGS (9)
  1. VITAMIN B12 [Concomitant]
     Active Substance: CYANOCOBALAMIN
  2. VITAMIN B6 [Concomitant]
     Active Substance: PYRIDOXINE HYDROCHLORIDE
  3. SYNTHROID [Concomitant]
     Active Substance: LEVOTHYROXINE SODIUM
  4. CAPECITABINE 500MG TAB [Suspect]
     Active Substance: CAPECITABINE
     Indication: COLON CANCER
     Dosage: OTHER DOSE:2 TABS?3 TABS;OTHER FREQUENCY:QAM?QPM; PO?
     Route: 048
     Dates: start: 20191003
  5. VITAMIN B1 [Concomitant]
     Active Substance: THIAMINE HYDROCHLORIDE
  6. ACCOLATE [Concomitant]
     Active Substance: ZAFIRLUKAST
  7. FERROUS SULF [Concomitant]
     Active Substance: FERROUS SULFATE
  8. XARELTO [Concomitant]
     Active Substance: RIVAROXABAN
  9. POT CL MICRO ER [Concomitant]

REACTIONS (2)
  - Therapy interrupted [None]
  - Animal bite [None]

NARRATIVE: CASE EVENT DATE: 20210309
